FAERS Safety Report 16684714 (Version 1)
Quarter: 2019Q3

REPORT INFORMATION
  Report Type: Spontaneous
  Country: FR (occurrence: FR)
  Receive Date: 20190808
  Receipt Date: 20190808
  Transmission Date: 20191004
  Serious: Yes (Death, Hospitalization)
  Sender: FDA-Public Use
  Company Number: FR-ALLERGAN-1931833US

PATIENT
  Sex: Male

DRUGS (15)
  1. SILODOSIN - BP [Suspect]
     Active Substance: SILODOSIN
     Indication: PROSTATITIS
     Dosage: 1 DF, QD
     Route: 048
     Dates: end: 20190126
  2. LERCAN [Suspect]
     Active Substance: LERCANIDIPINE
     Indication: HYPERTENSION
     Dosage: 1 DF, QD
     Route: 048
     Dates: end: 20190126
  3. TARDYFERON [Concomitant]
     Active Substance: FERROUS SULFATE
     Dosage: 1 DF, QD
     Route: 048
  4. FLUIDABAK [Concomitant]
     Active Substance: POVIDONE
     Dosage: 2 DF, QD
     Route: 047
  5. LEVOTHYROX [Concomitant]
     Active Substance: LEVOTHYROXINE
     Dosage: 1 DF, QD
     Route: 048
  6. AMIODARONE [Concomitant]
     Active Substance: AMIODARONE
     Dosage: 1 DF, QD
     Route: 048
  7. LASILIX                            /00032601/ [Suspect]
     Active Substance: FUROSEMIDE
     Indication: HYPERTENSION
     Dosage: 40 MG, QD
     Route: 048
     Dates: end: 20190126
  8. HUMALOG [Concomitant]
     Active Substance: INSULIN LISPRO
     Dosage: 6 UNITS, QD
     Route: 058
  9. PROSCAR [Concomitant]
     Active Substance: FINASTERIDE
     Dosage: 1 DF, QD
  10. VERATRAN [Concomitant]
     Active Substance: CLOTIAZEPAM
     Dosage: 1 DF, QD
     Route: 048
  11. SPIRIVA [Concomitant]
     Active Substance: TIOTROPIUM BROMIDE MONOHYDRATE
     Dosage: 1 DF, QD
     Route: 055
  12. SPIRONOLACTONE. [Suspect]
     Active Substance: SPIRONOLACTONE
     Indication: HYPERTENSION
     Dosage: 12.5 MG, QD
     Route: 048
     Dates: end: 20190126
  13. DUORESP SPIROMAX [Concomitant]
     Active Substance: BUDESONIDE\FORMOTEROL
     Dosage: 2 DF, QD
     Route: 048
  14. APROVEL [Suspect]
     Active Substance: IRBESARTAN
     Indication: HYPERTENSION
     Dosage: UNK
     Route: 065
     Dates: end: 20190126
  15. KARDEGIC [Concomitant]
     Active Substance: ASPIRIN DL-LYSINE
     Indication: THROMBOSIS PROPHYLAXIS
     Dosage: UNK
     Dates: end: 20190126

REACTIONS (1)
  - Fall [Fatal]

NARRATIVE: CASE EVENT DATE: 20190126
